FAERS Safety Report 5333834-X (Version None)
Quarter: 2007Q2

REPORT INFORMATION
  Report Type: 
  Country: None (occurrence: None)
  Receive Date: 20070524
  Receipt Date: 20070518
  Transmission Date: 20071010
  Serious: Yes (Life-Threatening)
  Sender: FDA-Public Use
  Company Number: GB-ASTRAZENECA-2007GB01062

PATIENT
  Sex: Male
  Weight: 3.1 kg

DRUGS (6)
  1. OMEPRAZOLE [Suspect]
     Indication: VOMITING
     Route: 064
     Dates: start: 20070101
  2. CYCLIZINE [Suspect]
     Indication: VOMITING
     Route: 064
  3. METOCLOPRAMIDE [Suspect]
     Indication: VOMITING
     Route: 064
     Dates: start: 20061208, end: 20061218
  4. PROCHLORPERAZINE [Suspect]
     Route: 064
  5. ZOFRAN [Suspect]
     Indication: VOMITING
     Route: 064
  6. FERROUS FUMARATE [Concomitant]
     Indication: ANAEMIA
     Route: 064
     Dates: start: 20061208, end: 20061218

REACTIONS (3)
  - ABDOMINAL DISTENSION [None]
  - MECONIUM ABNORMAL [None]
  - NECROTISING ENTEROCOLITIS NEONATAL [None]
